FAERS Safety Report 8927969 (Version 1)
Quarter: 2012Q4

REPORT INFORMATION
  Report Type: Spontaneous
  Country: US (occurrence: None)
  Receive Date: 20121119
  Receipt Date: 20121119
  Transmission Date: 20130627
  Serious: Yes (Other)
  Sender: FDA-Public Use
  Company Number: DKLU1086282

PATIENT
  Age: 45 Year
  Sex: Female

DRUGS (5)
  1. COSMEGEN [Suspect]
     Indication: MALIGNANT HYDATIDIFORM MOLE
     Dosage: hospital day 13
  2. ETOPOSIDE [Suspect]
     Indication: MALIGNANT HYDATIDIFORM MOLE
     Dosage: hospital day 13
  3. METHOTREXATE (METHOTREXATE) [Suspect]
     Indication: MALIGNANT HYDATIDIFORM MOLE
     Dosage: hospital day 13
  4. CYCLOPHOSPHAMIDE [Suspect]
     Indication: MALIGNANT HYDATIDIFORM MOLE
     Dosage: hospital day 13
  5. VINCRISTINE [Suspect]
     Indication: MALIGNANT HYDATIDIFORM MOLE
     Dosage: hospital day 13

REACTIONS (9)
  - Neutropenia [None]
  - Thrombocytopenia [None]
  - Respiratory distress [None]
  - General physical health deterioration [None]
  - Leukocytosis [None]
  - Condition aggravated [None]
  - Pulmonary embolism [None]
  - Neutrophilia [None]
  - Monocytosis [None]
